FAERS Safety Report 12134714 (Version 3)
Quarter: 2016Q1

REPORT INFORMATION
  Report Type: Report from Study
  Country: CA (occurrence: CA)
  Receive Date: 20160301
  Receipt Date: 20160310
  Transmission Date: 20160526
  Serious: Yes (Other)
  Sender: FDA-Public Use
  Company Number: CA-ROCHE-1694404

PATIENT
  Age: 51 Year
  Sex: Female

DRUGS (14)
  1. HERCEPTIN [Suspect]
     Active Substance: TRASTUZUMAB
     Indication: INVASIVE DUCTAL BREAST CARCINOMA
     Dosage: DOSE UNKNOWN.
     Route: 042
  2. ZOFRAN [Concomitant]
     Active Substance: ONDANSETRON HYDROCHLORIDE
  3. PERJETA [Suspect]
     Active Substance: PERTUZUMAB
     Dosage: FIRST RPAP DOSE.
     Route: 042
  4. NEULASTA [Concomitant]
     Active Substance: PEGFILGRASTIM
  5. EMEND [Concomitant]
     Active Substance: APREPITANT
  6. PERJETA [Suspect]
     Active Substance: PERTUZUMAB
     Indication: INVASIVE DUCTAL BREAST CARCINOMA
     Route: 042
  7. EPIRUBICIN [Suspect]
     Active Substance: EPIRUBICIN
     Indication: PRODUCT USED FOR UNKNOWN INDICATION
     Route: 065
  8. PERJETA [Suspect]
     Active Substance: PERTUZUMAB
     Route: 042
     Dates: end: 20160224
  9. HYDROMORPH [Concomitant]
     Active Substance: HYDROMORPHONE
  10. DOCETAXEL. [Suspect]
     Active Substance: DOCETAXEL
     Indication: PRODUCT USED FOR UNKNOWN INDICATION
     Route: 065
  11. FLUOROURACIL. [Suspect]
     Active Substance: FLUOROURACIL
     Indication: PRODUCT USED FOR UNKNOWN INDICATION
     Route: 065
  12. CYCLOPHOSPHAMIDE. [Suspect]
     Active Substance: CYCLOPHOSPHAMIDE
     Indication: PRODUCT USED FOR UNKNOWN INDICATION
     Route: 065
  13. CHLORPROMAZINE. [Concomitant]
     Active Substance: CHLORPROMAZINE
  14. DEXAMETHASONE. [Concomitant]
     Active Substance: DEXAMETHASONE

REACTIONS (23)
  - Tongue ulceration [Recovered/Resolved]
  - Haematocrit decreased [Unknown]
  - Hypotension [Unknown]
  - Carbon dioxide decreased [Unknown]
  - Pallor [Unknown]
  - Blood pressure fluctuation [Unknown]
  - Memory impairment [Not Recovered/Not Resolved]
  - Hyperhidrosis [Not Recovered/Not Resolved]
  - Red cell distribution width increased [Unknown]
  - Red blood cell count decreased [Unknown]
  - Decreased appetite [Unknown]
  - Feeling hot [Not Recovered/Not Resolved]
  - Dizziness [Not Recovered/Not Resolved]
  - Nasopharyngitis [Unknown]
  - Lymphocyte count decreased [Unknown]
  - Asthenia [Unknown]
  - Fatigue [Unknown]
  - Syncope [Unknown]
  - Cardiotoxicity [Unknown]
  - Nausea [Unknown]
  - Cardiac failure [Unknown]
  - Eosinophil count decreased [Unknown]
  - Haemoglobin decreased [Unknown]

NARRATIVE: CASE EVENT DATE: 20151222
